FAERS Safety Report 6426620-0 (Version None)
Quarter: 2009Q4

REPORT INFORMATION
  Report Type: 
  Country: None (occurrence: None)
  Receive Date: 20091104
  Receipt Date: 20091026
  Transmission Date: 20100525
  Serious: Yes (Life-Threatening, Hospitalization)
  Sender: FDA-Public Use
  Company Number: US-RB-004360-08

PATIENT
  Age: 44 Year
  Sex: Male

DRUGS (2)
  1. MUCINEX [Suspect]
     Indication: NASOPHARYNGITIS
     Dates: end: 20080910
  2. ALKA-SELTER PLUS [Suspect]
     Indication: NASOPHARYNGITIS
     Dates: start: 20080911

REACTIONS (9)
  - BLINDNESS [None]
  - BLOOD PRESSURE INCREASED [None]
  - CARDIAC DISORDER [None]
  - CEREBROVASCULAR ACCIDENT [None]
  - DRUG INEFFECTIVE [None]
  - OPTIC ISCHAEMIC NEUROPATHY [None]
  - PULMONARY OEDEMA [None]
  - RENAL FAILURE [None]
  - VISUAL ACUITY REDUCED [None]
